FAERS Safety Report 8248074-4 (Version None)
Quarter: 2012Q1

REPORT INFORMATION
  Report Type: 
  Country: None (occurrence: None)
  Receive Date: 20120330
  Receipt Date: 20120323
  Transmission Date: 20120608
  Serious: Yes (Other)
  Sender: FDA-Public Use
  Company Number: IT-JNJFOC-20120312944

PATIENT
  Sex: Female

DRUGS (30)
  1. DOCETAXEL [Suspect]
     Route: 065
  2. EPIRUBICIN [Suspect]
     Route: 065
  3. EPIRUBICIN [Suspect]
     Route: 065
  4. DOCETAXEL [Suspect]
     Route: 065
  5. CYCLOPHOSPHAMIDE [Suspect]
     Route: 065
  6. DOCETAXEL [Suspect]
     Route: 065
  7. DOXORUBICIN HCL [Suspect]
     Dosage: MEDIAN CUMULATIVE DOSE 300MG/M2
     Route: 042
  8. DOXORUBICIN HCL [Suspect]
     Dosage: MEDIAN CUMULATIVE DOSE 300MG/M2
     Route: 042
  9. DOXORUBICIN HCL [Suspect]
     Dosage: MEDIAN CUMULATIVE DOSE 300MG/M2
     Route: 042
  10. DOCETAXEL [Suspect]
     Route: 065
  11. FLUOROURACIL [Suspect]
     Route: 065
  12. EPIRUBICIN [Suspect]
     Route: 065
  13. EPIRUBICIN [Suspect]
     Route: 065
  14. FLUOROURACIL [Suspect]
     Route: 065
  15. FLUOROURACIL [Suspect]
     Route: 065
  16. CYCLOPHOSPHAMIDE [Suspect]
     Indication: BREAST CANCER
     Route: 065
  17. CYCLOPHOSPHAMIDE [Suspect]
     Route: 065
  18. DOXORUBICIN HCL [Suspect]
     Indication: BREAST CANCER
     Dosage: MEDIAN CUMULATIVE DOSE 300MG/M2
     Route: 042
  19. DOXORUBICIN HCL [Suspect]
     Dosage: MEDIAN CUMULATIVE DOSE 300MG/M2
     Route: 042
  20. DOXORUBICIN HCL [Suspect]
     Dosage: MEDIAN CUMULATIVE DOSE 300MG/M2
     Route: 042
  21. EPIRUBICIN [Suspect]
     Indication: BREAST CANCER
     Route: 065
  22. FLUOROURACIL [Suspect]
     Route: 065
  23. CYCLOPHOSPHAMIDE [Suspect]
     Route: 065
  24. EPIRUBICIN [Suspect]
     Route: 065
  25. FLUOROURACIL [Suspect]
     Route: 065
  26. CYCLOPHOSPHAMIDE [Suspect]
     Route: 065
  27. CYCLOPHOSPHAMIDE [Suspect]
     Route: 065
  28. DOCETAXEL [Suspect]
     Indication: BREAST CANCER
     Route: 065
  29. DOCETAXEL [Suspect]
     Route: 065
  30. FLUOROURACIL [Suspect]
     Indication: BREAST CANCER
     Route: 065

REACTIONS (4)
  - EJECTION FRACTION DECREASED [None]
  - CARDIAC FAILURE [None]
  - ARRHYTHMIA SUPRAVENTRICULAR [None]
  - DYSPNOEA [None]
